FAERS Safety Report 9163479 (Version 2)
Quarter: 2013Q1

REPORT INFORMATION
  Report Type: Report from Study
  Country: KR (occurrence: KR)
  Receive Date: 20130314
  Receipt Date: 20130318
  Transmission Date: 20140127
  Serious: Yes (Hospitalization)
  Sender: FDA-Public Use
  Company Number: KR-EISAI INC-E2090-02552-SOL-KR

PATIENT
  Sex: Female

DRUGS (3)
  1. EXCEGRAN [Suspect]
     Indication: EPILEPSY
     Route: 048
     Dates: start: 20120802
  2. ALUMINUM PHOSPHATE COLLOIDAL [Concomitant]
     Indication: PROPHYLAXIS AGAINST GASTROINTESTINAL ULCER
     Dosage: 60 G
     Route: 048
     Dates: start: 20120510
  3. PHENYTOIN [Concomitant]
     Indication: EPILEPSY
     Dosage: 350 MG
     Route: 041
     Dates: start: 20120720

REACTIONS (1)
  - Pneumonia [Recovered/Resolved]
